FAERS Safety Report 8356290-6 (Version None)
Quarter: 2012Q2

REPORT INFORMATION
  Report Type: 
  Country: None (occurrence: None)
  Receive Date: 20120514
  Receipt Date: 20120509
  Transmission Date: 20120825
  Serious: Yes (Hospitalization, Other)
  Sender: FDA-Public Use
  Company Number: US-PFIZER INC-2012113386

PATIENT
  Sex: Female
  Weight: 86.17 kg

DRUGS (1)
  1. LIPITOR [Suspect]
     Indication: CARDIAC DISORDER
     Dosage: 80 MG, DAILY

REACTIONS (2)
  - MYOCARDIAL INFARCTION [None]
  - BLOOD PRESSURE ABNORMAL [None]
